FAERS Safety Report 15123347 (Version 1)
Quarter: 2018Q3

REPORT INFORMATION
  Report Type: Report from Study
  Country: DE (occurrence: DE)
  Receive Date: 20180709
  Receipt Date: 20180709
  Transmission Date: 20181010
  Serious: Yes (Death, Hospitalization)
  Sender: FDA-Public Use
  Company Number: DE-SA-2018SA149297

PATIENT
  Age: 63 Year
  Sex: Male

DRUGS (13)
  1. NEBILET [Concomitant]
     Active Substance: NEBIVOLOL
  2. LEFLUNOMIDE. [Suspect]
     Active Substance: LEFLUNOMIDE
     Indication: PRODUCT USED FOR UNKNOWN INDICATION
     Dosage: 20 MG, UNK
     Route: 065
  3. LOSARTAN. [Concomitant]
     Active Substance: LOSARTAN
  4. MABTHERA [Suspect]
     Active Substance: RITUXIMAB
     Indication: RHEUMATOID ARTHRITIS
     Dosage: ON 01/DEC/2015, RECEIVED LAST DOSE PRIOR TO EVENT
     Route: 042
     Dates: start: 201308
  5. MABTHERA [Suspect]
     Active Substance: RITUXIMAB
     Dosage: 1000 MG
     Route: 042
     Dates: start: 201504
  6. ASPIRIN. [Concomitant]
     Active Substance: ASPIRIN
  7. LEFLUNOMIDE. [Suspect]
     Active Substance: LEFLUNOMIDE
     Dosage: 10 MG, UNK
  8. MABTHERA [Suspect]
     Active Substance: RITUXIMAB
     Dosage: 1000 MG
     Route: 042
     Dates: start: 201403
  9. MABTHERA [Suspect]
     Active Substance: RITUXIMAB
     Dosage: 1000 MG
     Route: 042
     Dates: start: 201512, end: 20151201
  10. DEKRISTOL [Concomitant]
     Active Substance: CHOLECALCIFEROL
  11. MABTHERA [Suspect]
     Active Substance: RITUXIMAB
     Dosage: 1000 MG
     Route: 042
     Dates: start: 201409
  12. PANTOZOL [PANTOPRAZOLE SODIUM SESQUIHYDRATE] [Concomitant]
  13. PREDNISOLON [PREDNISOLONE] [Concomitant]

REACTIONS (7)
  - Pulmonary mass [Unknown]
  - Pulmonary sepsis [Fatal]
  - Pneumonia [Unknown]
  - Colon cancer metastatic [Fatal]
  - Colon cancer [Recovered/Resolved]
  - Postoperative wound infection [Unknown]
  - Pneumonia [Fatal]

NARRATIVE: CASE EVENT DATE: 201601
